FAERS Safety Report 8121769-9 (Version None)
Quarter: 2012Q1

REPORT INFORMATION
  Report Type: 
  Country: None (occurrence: None)
  Receive Date: 20120208
  Receipt Date: 20120130
  Transmission Date: 20120608
  Serious: Yes (Life-Threatening, Other)
  Sender: FDA-Public Use
  Company Number: IE-ABBOTT-11P-229-0857331-00

PATIENT
  Sex: Female

DRUGS (13)
  1. VALDOXAN [Suspect]
     Indication: DEPRESSION
     Route: 048
     Dates: start: 20110214, end: 20110301
  2. MADOPAR [Concomitant]
     Indication: PRODUCT USED FOR UNKNOWN INDICATION
     Dosage: 200MG/50MG
     Dates: start: 20100211
  3. CLARITHROMYCIN [Suspect]
     Indication: PRODUCT USED FOR UNKNOWN INDICATION
     Route: 048
     Dates: start: 20110525, end: 20110603
  4. LAMICTAL [Suspect]
     Indication: DEPRESSION
     Route: 048
     Dates: start: 20110524
  5. LAMICTAL [Suspect]
     Dosage: 200MG DAILY
     Dates: end: 20110608
  6. AUGMENTIN '125' [Suspect]
     Indication: PRODUCT USED FOR UNKNOWN INDICATION
     Route: 065
     Dates: start: 20110525, end: 20110601
  7. VALDOXAN [Suspect]
     Route: 048
     Dates: start: 20110301, end: 20110608
  8. AGOMELATIN [Suspect]
     Dosage: 50 MG DAILY
     Dates: end: 20110608
  9. MIRTAZAPINE [Concomitant]
     Indication: DEPRESSION
     Dates: start: 20080929, end: 20110613
  10. MEMANTINE HYDROCHLORIDE [Concomitant]
     Indication: DEMENTIA
     Dates: start: 20100906
  11. AGOMELATIN [Suspect]
     Indication: DEPRESSION
     Route: 048
     Dates: start: 20110214
  12. MACROBID [Suspect]
     Indication: PRODUCT USED FOR UNKNOWN INDICATION
     Route: 065
     Dates: start: 20110526, end: 20110603
  13. PLAVIX [Concomitant]
     Indication: PRODUCT USED FOR UNKNOWN INDICATION

REACTIONS (10)
  - JAUNDICE [None]
  - BLOOD BILIRUBIN INCREASED [None]
  - URINARY TRACT INFECTION [None]
  - RED BLOOD CELL SEDIMENTATION RATE INCREASED [None]
  - C-REACTIVE PROTEIN INCREASED [None]
  - CHROMATURIA [None]
  - BLOOD ALKALINE PHOSPHATASE INCREASED [None]
  - ALANINE AMINOTRANSFERASE INCREASED [None]
  - GAMMA-GLUTAMYLTRANSFERASE INCREASED [None]
  - BODY TEMPERATURE INCREASED [None]
